FAERS Safety Report 6985469-0 (Version None)
Quarter: 2010Q3

REPORT INFORMATION
  Report Type: 
  Country: None (occurrence: None)
  Receive Date: 20100915
  Receipt Date: 20100908
  Transmission Date: 20110219
  Serious: Yes (Hospitalization)
  Sender: FDA-Public Use
  Company Number: A0881112A

PATIENT
  Age: 59 Year
  Sex: Female

DRUGS (1)
  1. AVANDIA [Suspect]
     Indication: BLOOD GLUCOSE INCREASED
     Dosage: 4MG PER DAY
     Route: 048
     Dates: start: 20020901, end: 20050701

REACTIONS (5)
  - ANXIETY [None]
  - CORONARY ARTERIAL STENT INSERTION [None]
  - CORONARY ARTERY BYPASS [None]
  - HYPOAESTHESIA [None]
  - PAIN IN EXTREMITY [None]
